FAERS Safety Report 5888180-2 (Version None)
Quarter: 2008Q3

REPORT INFORMATION
  Report Type: 
  Country: None (occurrence: None)
  Receive Date: 20080918
  Receipt Date: 20080912
  Transmission Date: 20090109
  Serious: Yes (Hospitalization)
  Sender: FDA-Public Use
  Company Number: US-ASTRAZENECA-2008UW19096

PATIENT
  Age: 82 Year
  Sex: Female

DRUGS (5)
  1. ARIMIDEX [Suspect]
     Dosage: DAILY
     Route: 048
     Dates: start: 20080701
  2. CALCIUM WITH VITAMIN D [Concomitant]
     Dosage: 600 OF CALCIUM
  3. MULTI-VITAMIN [Concomitant]
     Dosage: DAILY
  4. XANAX [Concomitant]
     Dosage: .05 HS AS NEEDED
  5. XELODA [Concomitant]
     Dates: end: 20080301

REACTIONS (4)
  - ANAEMIA [None]
  - DEEP VEIN THROMBOSIS [None]
  - LOCAL SWELLING [None]
  - NECK PAIN [None]
